APPROVED DRUG PRODUCT: CODEINE SULFATE
Active Ingredient: CODEINE SULFATE
Strength: 15MG
Dosage Form/Route: TABLET;ORAL
Application: N022402 | Product #001 | TE Code: AB
Applicant: HIKMA PHARMACEUTICALS USA INC
Approved: Jul 16, 2009 | RLD: Yes | RS: No | Type: RX